FAERS Safety Report 4467973-2 (Version None)
Quarter: 2004Q4

REPORT INFORMATION
  Report Type: 
  Country: None (occurrence: None)
  Receive Date: 20041001
  Receipt Date: 20040923
  Transmission Date: 20050328
  Serious: Yes (Hospitalization)
  Sender: FDA-Public Use
  Company Number: 2004PK01588

PATIENT
  Age: 81 Year
  Sex: Female
  Weight: 65 kg

DRUGS (13)
  1. BELOC ZOK [Suspect]
     Indication: HYPERTENSION
     Dosage: 47.5 MG BID PO
     Route: 048
     Dates: start: 20040301, end: 20040319
  2. MOBLOC ^ASTRA^ [Suspect]
     Indication: HYPERTENSION
     Dosage: 1 DF DAILY PO
     Route: 048
     Dates: start: 20040301, end: 20040319
  3. DURAGESIC [Suspect]
     Indication: PAIN
     Dosage: 25 UG DAILY TD
     Route: 062
  4. MONOLONG - SLOW RELEASE [Suspect]
     Indication: HYPERTENSION
     Dosage: 50 MG DAILY PO
     Route: 048
     Dates: start: 20040101, end: 20040319
  5. INSULIN ACTRAPHANE [Suspect]
     Indication: DIABETES MELLITUS
     Dosage: 36 IU DAILY SQ
     Route: 058
     Dates: end: 20040319
  6. LEVOFLOXACIN [Suspect]
     Indication: UPPER RESPIRATORY TRACT INFECTION
     Dosage: 1 DF DAILY PO
     Route: 048
     Dates: start: 20040315, end: 20040319
  7. DIBLOCIN PP [Concomitant]
  8. NEXIUM [Concomitant]
  9. ALLO [Concomitant]
  10. CO-DIOVAN [Concomitant]
  11. DEPRESSAN [Concomitant]
  12. FURORESE [Concomitant]
  13. HCT [Concomitant]

REACTIONS (4)
  - BRADYCARDIA [None]
  - DIZZINESS [None]
  - DRUG INTERACTION [None]
  - HYPOGLYCAEMIA [None]
